FAERS Safety Report 20444296 (Version 5)
Quarter: 2022Q2

REPORT INFORMATION
  Report Type: Spontaneous
  Country: US (occurrence: US)
  Receive Date: 20220208
  Receipt Date: 20220613
  Transmission Date: 20220720
  Serious: No
  Sender: FDA-Public Use
  Company Number: US-PFIZER INC-202200193175

PATIENT
  Age: 69 Year
  Sex: Male

DRUGS (4)
  1. BRAFTOVI [Suspect]
     Active Substance: ENCORAFENIB
     Indication: Papillary thyroid cancer
     Dosage: 75 MG
  2. BRAFTOVI [Suspect]
     Active Substance: ENCORAFENIB
     Indication: Thyroid cancer
  3. MEKTOVI [Suspect]
     Active Substance: BINIMETINIB
     Indication: Papillary thyroid cancer
     Dosage: 15 MG
  4. MEKTOVI [Suspect]
     Active Substance: BINIMETINIB
     Dosage: 15 MG, 1X/DAY

REACTIONS (3)
  - Neoplasm progression [Unknown]
  - Product dispensing issue [Unknown]
  - Fatigue [Unknown]
